FAERS Safety Report 19321588 (Version 1)
Quarter: 2021Q2

REPORT INFORMATION
  Report Type: Report from Study
  Country: US (occurrence: US)
  Receive Date: 20210527
  Receipt Date: 20210527
  Transmission Date: 20210717
  Serious: Yes (Hospitalization)
  Sender: FDA-Public Use
  Company Number: US-SEATTLE GENETICS-2021SGN02765

PATIENT
  Age: 53 Year
  Sex: Female

DRUGS (1)
  1. TUCATINIB [Suspect]
     Active Substance: TUCATINIB
     Indication: BREAST CANCER FEMALE

REACTIONS (8)
  - Incorrect dose administered [Unknown]
  - Asthenia [Unknown]
  - Feeling abnormal [Unknown]
  - Anorectal discomfort [Unknown]
  - Urinary tract infection [Unknown]
  - Swelling face [Unknown]
  - Hospice care [Unknown]
  - Hospitalisation [Recovered/Resolved]

NARRATIVE: CASE EVENT DATE: 20210514
